FAERS Safety Report 8887671 (Version 2)
Quarter: 2012Q4

REPORT INFORMATION
  Report Type: 
  Country: CO (occurrence: CO)
  Receive Date: 20121106
  Receipt Date: 20121113
  Transmission Date: 20130627
  Serious: Yes (Other)
  Sender: FDA-Public Use
  Company Number: CO-PFIZER INC-2012271680

PATIENT
  Age: 11 Year
  Sex: Female

DRUGS (4)
  1. GENOTROPIN [Suspect]
     Indication: STATURE SHORT
     Dosage: 0.6 mg, 1x/day
     Route: 058
     Dates: start: 2012
  2. SALBUTAMOL [Concomitant]
     Indication: ASTHMA
     Dosage: one puff at morniting and one at night
     Dates: start: 20010810
  3. MONTELUKAST [Concomitant]
     Indication: ASTHMA
     Dosage: 50 mg, 1x/day
     Route: 048
     Dates: start: 201209
  4. THEOPHYLLINE [Concomitant]
     Indication: ASTHMA

REACTIONS (2)
  - Asthmatic crisis [Recovering/Resolving]
  - Renal failure [Unknown]
